FAERS Safety Report 23994469 (Version 2)
Quarter: 2024Q3

REPORT INFORMATION
  Report Type: Report from Study
  Country: IN (occurrence: IN)
  Receive Date: 20240620
  Receipt Date: 20240809
  Transmission Date: 20241017
  Serious: Yes (Other)
  Sender: MYLAN
  Company Number: IN-MYLANLABS-2024M1055519

PATIENT
  Age: 49 Year
  Sex: Female
  Weight: 49 kg

DRUGS (14)
  1. PACLITAXEL [Suspect]
     Active Substance: PACLITAXEL
     Indication: Adenocarcinoma of colon
     Dosage: 20 MILLIGRAM/SQ. METER, QW (INFUSIONS; RECEIVED 2 CYCLES BEFORE LACK OF EFFICACY WAS NOTED)
     Route: 033
     Dates: start: 20210629, end: 20210712
  2. PACLITAXEL [Suspect]
     Active Substance: PACLITAXEL
     Indication: Metastases to peritoneum
  3. FLUOROURACIL [Suspect]
     Active Substance: FLUOROURACIL
     Indication: Adenocarcinoma of colon
     Dosage: UNK, BIWEEKLY (RECEIVED 4?CYCLES OF FLUOROURACIL WITH FOLINIC ACID, OXALIPLATIN, AND 1?CYCLE OF FLUO
     Route: 042
     Dates: start: 20210812, end: 20220322
  4. FLUOROURACIL [Suspect]
     Active Substance: FLUOROURACIL
     Indication: Metastases to peritoneum
  5. OXALIPLATIN [Suspect]
     Active Substance: OXALIPLATIN
     Indication: Adenocarcinoma of colon
     Dosage: UNK, BIWEEKLY (RECEIVED 4 CYCLES OF OXALIPLATIN BEFORE LACK OF EFFICACY WAS NOTED)
     Route: 042
     Dates: start: 20210812, end: 20220812
  6. OXALIPLATIN [Suspect]
     Active Substance: OXALIPLATIN
     Indication: Metastases to peritoneum
  7. IRINOTECAN [Suspect]
     Active Substance: IRINOTECAN
     Indication: Adenocarcinoma of colon
     Dosage: UNK, BIWEEKLY (RECEIVED 1 CYCLE OF IRINOTECAN BEFORE LACK OF EFFICACY WAS NOTED)
     Route: 042
     Dates: start: 20210404, end: 20210420
  8. IRINOTECAN [Suspect]
     Active Substance: IRINOTECAN
     Indication: Metastases to peritoneum
  9. LEUCOVORIN [Suspect]
     Active Substance: LEUCOVORIN\LEUCOVORIN CALCIUM
     Indication: Adenocarcinoma of colon
     Dosage: UNK, CYCLE (RECEIVED 4?CYCLES OF FOLINIC ACID WITH FLUOROURACIL, OXALIPLATIN, AND 1?CYCLE OF FOLINIC
     Route: 042
  10. LEUCOVORIN [Suspect]
     Active Substance: LEUCOVORIN\LEUCOVORIN CALCIUM
     Indication: Metastases to peritoneum
  11. BEVACIZUMAB [Suspect]
     Active Substance: BEVACIZUMAB
     Indication: Adenocarcinoma of colon
     Dosage: UNK
     Route: 042
  12. BEVACIZUMAB [Suspect]
     Active Substance: BEVACIZUMAB
     Indication: Metastases to peritoneum
  13. REGORAFENIB [Suspect]
     Active Substance: REGORAFENIB
     Indication: Adenocarcinoma of colon
     Dosage: 80 MILLIGRAM, QD
     Route: 065
     Dates: start: 20210721, end: 20211224
  14. REGORAFENIB [Suspect]
     Active Substance: REGORAFENIB
     Indication: Metastases to peritoneum

REACTIONS (3)
  - Drug ineffective [Unknown]
  - Disease progression [Unknown]
  - Off label use [Unknown]
